FAERS Safety Report 23902736 (Version 1)
Quarter: 2024Q2

REPORT INFORMATION
  Report Type: Spontaneous
  Country: UZ (occurrence: UZ)
  Receive Date: 20240527
  Receipt Date: 20240527
  Transmission Date: 20240716
  Serious: Yes (Death)
  Sender: FDA-Public Use
  Company Number: UZ-JNJFOC-20240563122

PATIENT
  Sex: Male
  Weight: 40 kg

DRUGS (6)
  1. BEDAQUILINE [Suspect]
     Active Substance: BEDAQUILINE
     Indication: Pulmonary tuberculosis
     Route: 048
     Dates: start: 20231215, end: 20231229
  2. BEDAQUILINE [Suspect]
     Active Substance: BEDAQUILINE
     Route: 048
     Dates: start: 20240101
  3. MOXIFLOXACIN [Suspect]
     Active Substance: MOXIFLOXACIN
     Indication: Pulmonary tuberculosis
     Route: 048
     Dates: start: 20231215
  4. LINEZOLID [Suspect]
     Active Substance: LINEZOLID
     Indication: Pulmonary tuberculosis
     Route: 048
     Dates: start: 20231215
  5. CLOFAZIMINE [Suspect]
     Active Substance: CLOFAZIMINE
     Indication: Pulmonary tuberculosis
     Route: 048
     Dates: start: 20231205, end: 20231220
  6. PRETOMANID [Suspect]
     Active Substance: PRETOMANID
     Indication: Pulmonary tuberculosis
     Route: 048
     Dates: start: 20231220

REACTIONS (2)
  - Acute respiratory failure [Fatal]
  - Cardiovascular insufficiency [Fatal]
